FAERS Safety Report 12016711 (Version 1)
Quarter: 2016Q1

REPORT INFORMATION
  Report Type: Spontaneous
  Country: US (occurrence: US)
  Receive Date: 20160205
  Receipt Date: 20160205
  Transmission Date: 20160526
  Serious: No
  Sender: FDA-Public Use
  Company Number: US-AMGEN-USASP2015137134

PATIENT
  Age: 52 Year
  Sex: Male
  Weight: 93.88 kg

DRUGS (3)
  1. NEULASTA [Suspect]
     Active Substance: PEGFILGRASTIM
     Indication: PRODUCT USED FOR UNKNOWN INDICATION
     Dosage: 6 MG, ON DAY 6 OF EACH CHEMO CYCLE
     Route: 058
     Dates: start: 20151218
  2. CISPLATIN. [Concomitant]
     Active Substance: CISPLATIN
     Indication: TESTIS CANCER
     Dosage: 44 MG, DAY 1 - 5
     Route: 042
     Dates: start: 20151214, end: 20151218
  3. ETOPOSIDE. [Concomitant]
     Active Substance: ETOPOSIDE
     Indication: TESTIS CANCER
     Dosage: 220 MG, DAY 1 - 5
     Route: 042
     Dates: start: 20151214, end: 20151218

REACTIONS (3)
  - Drug dose omission [Unknown]
  - Underdose [Recovered/Resolved]
  - Wrong technique in product usage process [Recovered/Resolved]

NARRATIVE: CASE EVENT DATE: 20151219
